FAERS Safety Report 24641948 (Version 1)
Quarter: 2024Q4

REPORT INFORMATION
  Report Type: Spontaneous
  Country: GB (occurrence: GB)
  Receive Date: 20241120
  Receipt Date: 20241120
  Transmission Date: 20250114
  Serious: Yes (Hospitalization, Other)
  Sender: MYLAN
  Company Number: GB-MYLANLABS-2024M1103319

PATIENT
  Sex: Male

DRUGS (1)
  1. CLOZARIL [Suspect]
     Active Substance: CLOZAPINE
     Indication: Schizophrenia
     Dosage: UNK (APPROXIMATE STOP DATE REPORTED AS 07-NOV-2024)
     Route: 048
     Dates: start: 20010701

REACTIONS (2)
  - Hospitalisation [Unknown]
  - Hallucination, auditory [Unknown]
